FAERS Safety Report 6362006-5 (Version None)
Quarter: 2009Q3

REPORT INFORMATION
  Report Type: 
  Country: None (occurrence: None)
  Receive Date: 20090918
  Receipt Date: 20090910
  Transmission Date: 20100115
  Serious: Yes (Hospitalization)
  Sender: FDA-Public Use
  Company Number: JP-AMGEN-US237188

PATIENT
  Sex: Female
  Weight: 43 kg

DRUGS (7)
  1. ENBREL [Suspect]
     Indication: RHEUMATOID ARTHRITIS
     Route: 058
     Dates: start: 20060904, end: 20061208
  2. RHEUMATREX [Suspect]
     Indication: RHEUMATOID ARTHRITIS
     Dosage: UNKNOWN
     Route: 048
     Dates: start: 20060929, end: 20061208
  3. PLETAL [Concomitant]
     Dosage: UNKNOWN
     Route: 048
  4. PREDNISOLONE [Concomitant]
     Dosage: UNKNOWN
     Route: 048
     Dates: start: 19990301
  5. FOLIAMIN [Concomitant]
     Indication: RHEUMATOID ARTHRITIS
     Route: 048
     Dates: start: 20061005, end: 20061208
  6. ACTONEL [Concomitant]
     Indication: OSTEOPOROSIS
     Dosage: UNKNOWN
     Route: 048
  7. ISCOTIN [Concomitant]
     Indication: ANTIBIOTIC PROPHYLAXIS
     Route: 048
     Dates: start: 20060904, end: 20070101

REACTIONS (1)
  - PNEUMONIA FUNGAL [None]
